FAERS Safety Report 17519222 (Version 1)
Quarter: 2020Q1

REPORT INFORMATION
  Report Type: Spontaneous
  Country: NO (occurrence: NO)
  Receive Date: 20200309
  Receipt Date: 20200309
  Transmission Date: 20200409
  Serious: Yes (Hospitalization)
  Sender: FDA-Public Use
  Company Number: NO-009507513-2003NOR000925

PATIENT
  Sex: Male
  Weight: 90 kg

DRUGS (5)
  1. ATOZET [Suspect]
     Active Substance: ATORVASTATIN CALCIUM\EZETIMIBE
     Indication: HYPERCHOLESTEROLAEMIA
     Dosage: 20 MILLIGRAM, QD
     Dates: start: 20170101, end: 20191026
  2. METOPROLOL TARTRATE. [Concomitant]
     Active Substance: METOPROLOL TARTRATE
     Dates: start: 20180615
  3. ASACOL [Concomitant]
     Active Substance: MESALAMINE
  4. ALBYL-E [Concomitant]
     Active Substance: ASPIRIN\MAGNESIUM OXIDE
     Dates: start: 20161027
  5. SOMAC [Concomitant]
     Active Substance: PANTOPRAZOLE SODIUM
     Dates: start: 20161026

REACTIONS (2)
  - Myalgia [Recovered/Resolved]
  - Dyspnoea [Recovered/Resolved]

NARRATIVE: CASE EVENT DATE: 20170403
